FAERS Safety Report 16390123 (Version 3)
Quarter: 2019Q3

REPORT INFORMATION
  Report Type: Spontaneous
  Country: FR (occurrence: FR)
  Receive Date: 20190604
  Receipt Date: 20190905
  Transmission Date: 20191004
  Serious: Yes (Death, Life-Threatening, Hospitalization, Disabling, Other)
  Sender: FDA-Public Use
  Company Number: FR-MYLANLABS-2019M1053329

PATIENT
  Age: 39 Year
  Sex: Female
  Weight: 72 kg

DRUGS (4)
  1. NEFOPAM [Concomitant]
     Active Substance: NEFOPAM
     Dosage: UNK
     Dates: start: 20190418, end: 20190418
  2. IBUPROFEN. [Concomitant]
     Active Substance: IBUPROFEN
     Dosage: UNK
     Dates: start: 20190417, end: 20190417
  3. FONDAPARINUX [Suspect]
     Active Substance: FONDAPARINUX
     Indication: THROMBOPHLEBITIS SUPERFICIAL
     Dosage: 2.5 UNK
     Route: 058
     Dates: start: 20190417, end: 20190418
  4. PARACETAMOL [Concomitant]
     Active Substance: ACETAMINOPHEN
     Dosage: UNK
     Dates: start: 20190417, end: 20190418

REACTIONS (2)
  - Haemorrhagic stroke [Fatal]
  - Apallic syndrome [Recovered/Resolved with Sequelae]

NARRATIVE: CASE EVENT DATE: 20190418
